FAERS Safety Report 6405039-2 (Version None)
Quarter: 2009Q4

REPORT INFORMATION
  Report Type: 
  Country: None (occurrence: None)
  Receive Date: 20091019
  Receipt Date: 20091016
  Transmission Date: 20100525
  Serious: Yes (Hospitalization)
  Sender: FDA-Public Use
  Company Number: US-PFIZER INC-2009263048

PATIENT
  Sex: Female
  Weight: 57.596 kg

DRUGS (5)
  1. TIKOSYN [Suspect]
     Indication: ATRIAL FIBRILLATION
     Dosage: 0.25 MG, DAILY
     Dates: start: 20090501
  2. TIKOSYN [Suspect]
     Dosage: 0.125 MG, 1X/DAY
     Dates: start: 20090809
  3. SYNTHROID [Concomitant]
  4. COZAAR [Concomitant]
  5. ACETYLSALICYLIC ACID [Concomitant]

REACTIONS (5)
  - ABNORMAL BEHAVIOUR [None]
  - ATRIAL FIBRILLATION [None]
  - CARDIAC DISORDER [None]
  - HYPERSOMNIA [None]
  - THINKING ABNORMAL [None]
